FAERS Safety Report 26206064 (Version 1)
Quarter: 2025Q4

REPORT INFORMATION
  Report Type: Spontaneous
  Country: US (occurrence: US)
  Receive Date: 20251229
  Receipt Date: 20251229
  Transmission Date: 20260119
  Serious: No
  Sender: ROCHE
  Company Number: US-ROCHE-10000464143

PATIENT
  Age: 21 Year
  Sex: Female

DRUGS (4)
  1. CELLCEPT [Suspect]
     Active Substance: MYCOPHENOLATE MOFETIL
     Indication: Lupus nephritis
  2. HYDROXYCHLOROQUINE [Concomitant]
     Active Substance: HYDROXYCHLOROQUINE
  3. IRON [Concomitant]
     Active Substance: IRON
  4. VITAMIN D [Concomitant]
     Active Substance: VITAMIN D NOS

REACTIONS (3)
  - Sexual abstinence [Unknown]
  - Anaemia [Unknown]
  - Off label use [Unknown]
